FAERS Safety Report 15273239 (Version 1)
Quarter: 2018Q3

REPORT INFORMATION
  Report Type: Report from Study
  Country: None (occurrence: US)
  Receive Date: 20180813
  Receipt Date: 20180813
  Transmission Date: 20181010
  Serious: Yes (Hospitalization, Other)
  Sender: FDA-Public Use
  Company Number: US-BAUSCH-BL-2018-015887

PATIENT
  Sex: Female
  Weight: 60.84 kg

DRUGS (3)
  1. XIFAXAN [Suspect]
     Active Substance: RIFAXIMIN
     Indication: HEPATIC CIRRHOSIS
     Route: 048
     Dates: start: 201703, end: 201805
  2. XIFAXAN [Suspect]
     Active Substance: RIFAXIMIN
     Route: 048
     Dates: start: 2018, end: 201806
  3. XIFAXAN [Suspect]
     Active Substance: RIFAXIMIN
     Route: 048
     Dates: start: 2018

REACTIONS (22)
  - Strangulated umbilical hernia [Not Recovered/Not Resolved]
  - Malaise [Not Recovered/Not Resolved]
  - Abdominal discomfort [Not Recovered/Not Resolved]
  - Insurance issue [Recovered/Resolved]
  - Confusional state [Not Recovered/Not Resolved]
  - Erythema [Recovering/Resolving]
  - Insomnia [Not Recovered/Not Resolved]
  - Dizziness [Not Recovered/Not Resolved]
  - Pyrexia [Recovering/Resolving]
  - Product supply issue [Recovered/Resolved]
  - Ammonia decreased [Recovered/Resolved]
  - Blood disorder [Recovered/Resolved]
  - Thinking abnormal [Not Recovered/Not Resolved]
  - Blood pressure abnormal [Recovered/Resolved]
  - Mental disorder [Recovered/Resolved]
  - Ill-defined disorder [Not Recovered/Not Resolved]
  - Drug hypersensitivity [Not Recovered/Not Resolved]
  - Depression [Not Recovered/Not Resolved]
  - Intra-abdominal fluid collection [Recovering/Resolving]
  - Nausea [Not Recovered/Not Resolved]
  - Swelling [Recovered/Resolved]
  - Tenderness [Recovering/Resolving]

NARRATIVE: CASE EVENT DATE: 2018
